FAERS Safety Report 7828644-5 (Version None)
Quarter: 2011Q4

REPORT INFORMATION
  Report Type: 
  Country: None (occurrence: None)
  Receive Date: 20111020
  Receipt Date: 20111010
  Transmission Date: 20120403
  Serious: Yes (Other)
  Sender: FDA-Public Use
  Company Number: US-BAYER-2011-026095

PATIENT
  Age: 39 Year
  Sex: Female
  Weight: 95.238 kg

DRUGS (2)
  1. MULTI-VITAMIN [Concomitant]
  2. MIRENA [Suspect]
     Indication: CONTRACEPTION
     Dosage: 20 ?G, CONT
     Route: 015
     Dates: start: 20050328, end: 20101029

REACTIONS (6)
  - DEVICE EXPULSION [None]
  - DEVICE DISLOCATION [None]
  - VULVOVAGINAL PRURITUS [None]
  - OPERATIVE HAEMORRHAGE [None]
  - AMENORRHOEA [None]
  - VULVITIS [None]
